FAERS Safety Report 4840462-9 (Version None)
Quarter: 2005Q4

REPORT INFORMATION
  Report Type: 
  Country: None (occurrence: None)
  Receive Date: 20051129
  Receipt Date: 20051129
  Transmission Date: 20060501
  Serious: No
  Sender: FDA-Public Use
  Company Number: None

PATIENT
  Age: 51 Year
  Sex: Female
  Weight: 61.2356 kg

DRUGS (2)
  1. EFFEXOR XR [Suspect]
     Indication: PREMENSTRUAL SYNDROME
     Dosage: 75MG ONCE DAILY PO
     Route: 048
     Dates: start: 20010817, end: 20050923
  2. EFFEXOR XR [Suspect]
     Dosage: 37.5MG  ONCE DAILY PO
     Route: 048
     Dates: start: 20050924, end: 20051120

REACTIONS (3)
  - DRUG WITHDRAWAL SYNDROME [None]
  - IMPAIRED DRIVING ABILITY [None]
  - VERTIGO [None]
